FAERS Safety Report 13246394 (Version 2)
Quarter: 2017Q3

REPORT INFORMATION
  Report Type: Spontaneous
  Country: US (occurrence: US)
  Receive Date: 20170217
  Receipt Date: 20170824
  Transmission Date: 20171127
  Serious: Yes (Other)
  Sender: FDA-Public Use
  Company Number: US-JNJFOC-20151014064

PATIENT
  Sex: Male

DRUGS (7)
  1. RISPERDAL [Suspect]
     Active Substance: RISPERIDONE
     Indication: SCHIZOPHRENIA
     Dosage: VARYING DOSES OF 1,2 3 AND 4 MG
     Route: 048
     Dates: start: 200202, end: 200308
  2. RISPERDAL [Suspect]
     Active Substance: RISPERIDONE
     Indication: MENTAL DISORDER
     Route: 048
     Dates: start: 200001, end: 200201
  3. RISPERDAL [Suspect]
     Active Substance: RISPERIDONE
     Indication: SCHIZOPHRENIA
     Route: 048
     Dates: start: 200001, end: 200201
  4. SEROQUEL [Suspect]
     Active Substance: QUETIAPINE FUMARATE
     Indication: PRODUCT USED FOR UNKNOWN INDICATION
     Dosage: VARYING DOSES OF 25 AND 100 MG
     Route: 065
     Dates: start: 200202, end: 200307
  5. RISPERDAL [Suspect]
     Active Substance: RISPERIDONE
     Indication: SCHIZOPHRENIA
     Dosage: RISPERDAL WAS GIVEN AT A VARYING DOSES OF 4 MG,1MG,2MG AND 3 MG.
     Route: 048
     Dates: end: 2003
  6. RISPERDAL [Suspect]
     Active Substance: RISPERIDONE
     Indication: MENTAL DISORDER
     Dosage: RISPERDAL WAS GIVEN AT A VARYING DOSES OF 4 MG,1MG,2MG AND 3 MG.
     Route: 048
     Dates: end: 2003
  7. RISPERDAL [Suspect]
     Active Substance: RISPERIDONE
     Indication: MENTAL DISORDER
     Dosage: VARYING DOSES OF 1,2 3 AND 4 MG
     Route: 048
     Dates: start: 200202, end: 200308

REACTIONS (5)
  - Gynaecomastia [Unknown]
  - Obesity [Unknown]
  - Suicide attempt [Unknown]
  - Overdose [Unknown]
  - Hyperglycaemia [Unknown]

NARRATIVE: CASE EVENT DATE: 2002
